FAERS Safety Report 16442530 (Version 1)
Quarter: 2019Q2

REPORT INFORMATION
  Report Type: Spontaneous
  Country: US (occurrence: US)
  Receive Date: 20190617
  Receipt Date: 20190617
  Transmission Date: 20190711
  Serious: No
  Sender: FDA-Public Use
  Company Number: US-PFIZER INC-2016177750

PATIENT
  Age: 43 Year
  Sex: Male
  Weight: 110 kg

DRUGS (10)
  1. LYRICA [Suspect]
     Active Substance: PREGABALIN
     Indication: PARTIAL SEIZURES
     Dosage: 300 MG, 2X/DAY (TAKE 1 CAPSULE BY MOUTH 2 TIMES DAILY)
     Route: 048
     Dates: start: 20160823, end: 20170823
  2. LYRICA [Suspect]
     Active Substance: PREGABALIN
     Indication: FOCAL DYSCOGNITIVE SEIZURES
     Dosage: 300 MG, 2X/DAY
     Route: 048
     Dates: start: 20170818
  3. LYRICA [Suspect]
     Active Substance: PREGABALIN
     Dosage: 300 MG, 2X/DAY (ONE IN MORNING ONE AT NIGHT)
     Route: 048
  4. LAMOTRIGINE. [Concomitant]
     Active Substance: LAMOTRIGINE
     Indication: ANXIETY
     Dosage: 200 MG, 2X/DAY (ONE 200MG, TABLET, BY MOUTH, TWICE DAILY)
     Route: 048
  5. LYRICA [Suspect]
     Active Substance: PREGABALIN
     Indication: SEIZURE
     Dosage: 300 MG, 2X/DAY
     Route: 048
     Dates: start: 20190423
  6. ESCITALOPRAM [Concomitant]
     Active Substance: ESCITALOPRAM OXALATE
     Indication: ANXIETY
     Dosage: 10 MG, 1X/DAY (10MG, TABLET, BY MOUTH, ONCE DAILY)
     Route: 048
  7. LYRICA [Suspect]
     Active Substance: PREGABALIN
     Dosage: 150 MG, 2X/DAY
     Route: 048
  8. TOPIRAMATE. [Concomitant]
     Active Substance: TOPIRAMATE
     Indication: SEIZURE
     Dosage: 200 MG, 2X/DAY (TWO 100MG, TABLETS, BY MOUTH, TWICE DAILY)
     Route: 048
  9. CANNABIDIOL [Concomitant]
     Active Substance: CANNABIDIOL
     Indication: ANXIETY
     Dosage: 500 MG, 2X/DAY (ONE DROP IN MOUTH, TWICE DAILY (IN THE MORNING AND BEFORE GOING TO BED)
  10. LYRICA [Suspect]
     Active Substance: PREGABALIN
     Indication: EPILEPSY
     Dosage: 75 MG, UNK
     Route: 048
     Dates: start: 20181120

REACTIONS (1)
  - Visual impairment [Not Recovered/Not Resolved]
